FAERS Safety Report 9202113 (Version 2)
Quarter: 2013Q2

REPORT INFORMATION
  Report Type: Spontaneous
  Country: IT (occurrence: None)
  Receive Date: 20130328
  Receipt Date: 20130409
  Transmission Date: 20140414
  Serious: Yes (Hospitalization)
  Sender: FDA-Public Use
  Company Number: 2013AP003836

PATIENT
  Sex: Female

DRUGS (3)
  1. ALPRAZOLAM [Suspect]
  2. QUETIAPINE FUMARATE [Suspect]
  3. CITALOPRAM [Suspect]

REACTIONS (2)
  - Loss of consciousness [None]
  - Suicide attempt [None]
